FAERS Safety Report 7197759-X (Version None)
Quarter: 2010Q4

REPORT INFORMATION
  Report Type: 
  Country: None (occurrence: None)
  Receive Date: 20101227
  Receipt Date: 20101215
  Transmission Date: 20110411
  Serious: Yes (Hospitalization, Other)
  Sender: FDA-Public Use
  Company Number: US-ELI_LILLY_AND_COMPANY-US201012004702

PATIENT
  Sex: Female

DRUGS (3)
  1. EVISTA [Suspect]
     Indication: OSTEOPOROSIS
     Dosage: 60 MG, UNK
  2. CALCIUM [Concomitant]
     Dosage: 1 D/F, UNK
  3. VITAMIN D [Concomitant]
     Dosage: 1 D/F, UNK

REACTIONS (6)
  - COUGH [None]
  - DYSPNOEA [None]
  - EPISTAXIS [None]
  - GAIT DISTURBANCE [None]
  - NASOPHARYNGITIS [None]
  - PULMONARY THROMBOSIS [None]
